FAERS Safety Report 26080810 (Version 1)
Quarter: 2025Q4

REPORT INFORMATION
  Report Type: Report from Study
  Country: TR (occurrence: TR)
  Receive Date: 20251124
  Receipt Date: 20251124
  Transmission Date: 20260118
  Serious: Yes (Hospitalization, Other)
  Sender: ABBVIE
  Company Number: TR-ABBVIE-6559390

PATIENT
  Sex: Male
  Weight: 82 kg

DRUGS (8)
  1. CARBIDOPA\LEVODOPA [Suspect]
     Active Substance: CARBIDOPA\LEVODOPA
     Indication: Parkinson^s disease
     Dosage: MORNING DOSE (ML): 7.00 CONTINUOUS DOSE (ML): 4.60 EXTRA DOSE (ML): 1.50
     Route: 050
     Dates: start: 20180313
  2. CARBIDOPA\LEVODOPA [Suspect]
     Active Substance: CARBIDOPA\LEVODOPA
  3. AMANTADINE SULFATE [Concomitant]
     Active Substance: AMANTADINE SULFATE
     Indication: Parkinson^s disease
     Dosage: 200 MILLIGRAM?FORM STRENGTH: 100 MILLIGRAM
     Dates: start: 20180313
  4. MOTILIUM [Concomitant]
     Active Substance: DOMPERIDONE
     Indication: Parkinson^s disease
     Dosage: 20 MILLIGRAM?FORM STRENGTH: 10 MILLIGRAM
     Route: 048
     Dates: start: 2013
  5. ALFUZOSIN [Concomitant]
     Active Substance: ALFUZOSIN
     Indication: Prostatic disorder
     Dosage: 10 MILLIGRAM?FORM STRENGTH: 10 MILLIGRAM
     Route: 048
     Dates: start: 2002
  6. BENSERAZIDE HYDROCHLORIDE\LEVODOPA [Concomitant]
     Active Substance: BENSERAZIDE HYDROCHLORIDE\LEVODOPA
     Indication: Parkinson^s disease
     Dosage: 375 MILLIGRAM?MADOPAR HBS?FORM STRENGTH: 125 MILLIGRAM
     Route: 048
     Dates: start: 20180313
  7. PANTOPRAZOLE SODIUM [Concomitant]
     Active Substance: PANTOPRAZOLE SODIUM
     Indication: Gastrointestinal disorder prophylaxis
     Dosage: 40 MILLIGRAM?FORM STRENGTH: 40 MILLIGRAM
     Route: 048
     Dates: start: 20180313
  8. Delix [Concomitant]
     Indication: Hypertension
     Dosage: 2.5 MG
     Route: 048
     Dates: start: 2002

REACTIONS (4)
  - Hip fracture [Recovered/Resolved]
  - Device dislocation [Unknown]
  - Fall [Recovered/Resolved]
  - Fall [Recovered/Resolved]
